FAERS Safety Report 5162100-0 (Version None)
Quarter: 2006Q4

REPORT INFORMATION
  Report Type: 
  Country: None (occurrence: None)
  Receive Date: 20061121
  Receipt Date: 20061108
  Transmission Date: 20070319
  Serious: Yes (Hospitalization)
  Sender: FDA-Public Use
  Company Number: 310001L06TUR

PATIENT
  Age: 38 Year
  Sex: Female

DRUGS (1)
  1. GONAL-F [Suspect]
     Dosage: 3 CYCLE

REACTIONS (1)
  - OVARIAN ADENOMA [None]
